FAERS Safety Report 18590062 (Version 1)
Quarter: 2020Q4

REPORT INFORMATION
  Report Type: Spontaneous
  Country: US (occurrence: US)
  Receive Date: 20201208
  Receipt Date: 20201208
  Transmission Date: 20210114
  Serious: Yes (Disabling)
  Sender: FDA-Public Use
  Company Number: None

PATIENT
  Age: 38 Year
  Sex: Female

DRUGS (1)
  1. LUPRON [Suspect]
     Active Substance: LEUPROLIDE ACETATE
     Indication: ENDOMETRIOSIS
     Dosage: ?          OTHER FREQUENCY:MONTHLY;?
     Route: 030
     Dates: start: 19981129, end: 20000901

REACTIONS (18)
  - Autoimmune disorder [None]
  - Dental caries [None]
  - Neuropathy peripheral [None]
  - Seizure [None]
  - Hot flush [None]
  - Nerve injury [None]
  - Arthralgia [None]
  - Bone density abnormal [None]
  - Nervous system disorder [None]
  - Fatigue [None]
  - Tachycardia [None]
  - Endocrine disorder [None]
  - Hormone level abnormal [None]
  - Mental disorder [None]
  - Heart rate irregular [None]
  - Blood pressure measurement [None]
  - Back pain [None]
  - Thyroid disorder [None]

NARRATIVE: CASE EVENT DATE: 20201208
